FAERS Safety Report 4567990-8 (Version None)
Quarter: 2005Q1

REPORT INFORMATION
  Report Type: 
  Country: None (occurrence: None)
  Receive Date: 20050128
  Receipt Date: 20050112
  Transmission Date: 20050727
  Serious: Yes (Hospitalization)
  Sender: FDA-Public Use
  Company Number: DSA_25644_2005

PATIENT
  Age: 72 Year
  Sex: Female

DRUGS (13)
  1. TILDIEM [Suspect]
     Indication: HYPERTENSION
     Dosage: 400 MG Q DAY PO
     Route: 048
     Dates: end: 20041209
  2. TILDIEM [Suspect]
     Indication: MYOCARDIAL INFARCTION
     Dosage: 400 MG Q DAY PO
     Route: 048
     Dates: end: 20041209
  3. METOPROLOL [Suspect]
     Indication: BLOOD PRESSURE INCREASED
     Dosage: 100 MG BID PO
     Route: 048
     Dates: end: 20041201
  4. METOPROLOL [Suspect]
     Indication: MYOCARDIAL INFARCTION
     Dosage: 100 MG BID PO
     Route: 048
     Dates: end: 20041201
  5. METOPROLOL [Suspect]
     Indication: BLOOD PRESSURE INCREASED
     Dosage: DF
  6. METOPROLOL [Suspect]
     Indication: MYOCARDIAL INFARCTION
     Dosage: DF
  7. SOLPADOL [Concomitant]
  8. QUININE SULPHATE [Concomitant]
  9. ISOSORBIDE MONONITRATE [Concomitant]
  10. LISINOPRIL [Concomitant]
  11. ATORVASTATIN [Concomitant]
  12. ASPIRIN [Concomitant]
  13. AMITRIPTYLINE [Concomitant]

REACTIONS (3)
  - BLOOD PRESSURE DECREASED [None]
  - CIRCULATORY COLLAPSE [None]
  - HEART RATE DECREASED [None]
